FAERS Safety Report 8329639-8 (Version None)
Quarter: 2012Q2

REPORT INFORMATION
  Report Type: 
  Country: None (occurrence: None)
  Receive Date: 20120502
  Receipt Date: 20090929
  Transmission Date: 20120825
  Serious: No
  Sender: FDA-Public Use
  Company Number: US-TEVA-2009010908

PATIENT
  Sex: Female
  Weight: 53.572 kg

DRUGS (10)
  1. NUVIGIL [Suspect]
     Dosage: 37.5 MILLIGRAM;
     Route: 048
     Dates: start: 20090921
  2. PROAIR HFA [Concomitant]
  3. NUVIGIL [Suspect]
     Indication: FATIGUE
     Dosage: 37.5 MILLIGRAM;
     Route: 048
     Dates: start: 20090821, end: 20090921
  4. LEVOTHROID [Concomitant]
  5. RISPERDAL [Concomitant]
  6. PANCRELIPASE [Concomitant]
  7. LAMICTAL [Concomitant]
  8. LIBRIUM [Concomitant]
  9. AMBIEN [Concomitant]
  10. NEURONTIN [Concomitant]

REACTIONS (4)
  - PSYCHOMOTOR HYPERACTIVITY [None]
  - DRUG ADMINISTRATION ERROR [None]
  - PARAESTHESIA [None]
  - DRUG TOLERANCE [None]
